FAERS Safety Report 8789101 (Version 2)
Quarter: 2012Q4

REPORT INFORMATION
  Report Type: 
  Country: IL (occurrence: IL)
  Receive Date: 20120917
  Receipt Date: 20121001
  Transmission Date: 20130627
  Serious: Yes (Other)
  Sender: FDA-Public Use
  Company Number: IL-BIOGENIDEC-2012BI030639

PATIENT
  Sex: Male

DRUGS (9)
  1. AVONEX [Suspect]
     Indication: PRODUCT USED FOR UNKNOWN INDICATION
     Route: 030
     Dates: start: 201203, end: 2012
  2. AVONEX [Suspect]
     Indication: PRODUCT USED FOR UNKNOWN INDICATION
     Route: 030
     Dates: start: 20120803
  3. MODAFINIL [Concomitant]
  4. FAMPRIDINE [Concomitant]
  5. MEDICAL CANNABIS [Concomitant]
  6. KALETRA [Concomitant]
     Indication: PROPHYLAXIS AGAINST HIV INFECTION
  7. COMBIVIR [Concomitant]
     Indication: PROPHYLAXIS AGAINST HIV INFECTION
  8. COPAXONE [Concomitant]
  9. ESTOCRIN [Concomitant]
     Indication: PROPHYLAXIS AGAINST HIV INFECTION

REACTIONS (4)
  - Pyrexia [Recovered/Resolved]
  - Influenza like illness [Recovered/Resolved]
  - Pain [Recovered/Resolved]
  - Syncope [Recovered/Resolved]
